FAERS Safety Report 7282747-5 (Version None)
Quarter: 2011Q1

REPORT INFORMATION
  Report Type: 
  Country: None (occurrence: None)
  Receive Date: 20110128
  Receipt Date: 20110120
  Transmission Date: 20110831
  Serious: Yes (Death)
  Sender: FDA-Public Use
  Company Number: 1000018344

PATIENT
  Age: 59 Year
  Sex: Female

DRUGS (10)
  1. LORCET-HD [Suspect]
  2. PROMETHAZINE [Suspect]
  3. LAMOTRIGINE [Suspect]
  4. TRANDALOPRIL/VERAPAMIL (TRANDALOPRIL/VERAPAMIL) [Suspect]
  5. AMLODIPINE [Suspect]
  6. SERTRALINE HYDROCHLORIDE [Suspect]
  7. EZETIMIBE/SIMVASTATIN [Suspect]
  8. LEVOTHROID (LEVOTHYROXINE SODIUM) [Suspect]
  9. CLONIDINE [Suspect]
  10. FENOFIBRATE [Suspect]

REACTIONS (4)
  - MULTIPLE DRUG OVERDOSE INTENTIONAL [None]
  - CARDIAC ARREST [None]
  - COMPLETED SUICIDE [None]
  - RESPIRATORY ARREST [None]
